FAERS Safety Report 6807486-3 (Version None)
Quarter: 2010Q2

REPORT INFORMATION
  Report Type: 
  Country: None (occurrence: None)
  Receive Date: 20100629
  Receipt Date: 20081111
  Transmission Date: 20101027
  Serious: Yes (Other)
  Sender: FDA-Public Use
  Company Number: US-PFIZER INC-2008083614

PATIENT
  Sex: Male
  Weight: 86.363 kg

DRUGS (7)
  1. VIAGRA [Suspect]
     Indication: ERECTILE DYSFUNCTION
     Dates: start: 20080601, end: 20080921
  2. CRESTOR [Concomitant]
  3. ATACAND [Concomitant]
  4. TRICOR [Concomitant]
  5. PLAVIX [Concomitant]
  6. ACETYLSALICYLIC ACID [Concomitant]
  7. MULTI-VITAMINS [Concomitant]

REACTIONS (2)
  - DEAFNESS [None]
  - NASOPHARYNGITIS [None]
